FAERS Safety Report 9216981 (Version 1)
Quarter: 2013Q2

REPORT INFORMATION
  Report Type: Spontaneous
  Country: DE (occurrence: DE)
  Receive Date: 20130408
  Receipt Date: 20130408
  Transmission Date: 20140414
  Serious: Yes (Death)
  Sender: FDA-Public Use
  Company Number: DE-NOVOPROD-374374

PATIENT
  Sex: Male

DRUGS (3)
  1. NOVORAPID [Suspect]
     Indication: PRODUCT USED FOR UNKNOWN INDICATION
     Dosage: UNK
     Route: 065
  2. NOVORAPID [Suspect]
     Dosage: UNK
     Route: 065
  3. NOVORAPID [Suspect]
     Dosage: UNK
     Route: 065

REACTIONS (1)
  - Death [Fatal]
